FAERS Safety Report 13364024 (Version 1)
Quarter: 2017Q1

REPORT INFORMATION
  Report Type: Spontaneous
  Country: DK (occurrence: DK)
  Receive Date: 20170323
  Receipt Date: 20170323
  Transmission Date: 20170429
  Serious: Yes (Hospitalization, Disabling)
  Sender: FDA-Public Use
  Company Number: DK-TEVA-2013-21267

PATIENT
  Age: 47 Year
  Sex: Male

DRUGS (2)
  1. AMLODIPIN KRKA [Suspect]
     Active Substance: AMLODIPINE BESYLATE
     Indication: HYPERTENSION
     Dosage: 10 MILLIGRAM DAILY;
     Route: 048
     Dates: start: 20111216, end: 20130210
  2. AMLODIPINE [Suspect]
     Active Substance: AMLODIPINE BESYLATE
     Indication: HYPERTENSION
     Dosage: 10 MILLIGRAM DAILY;
     Route: 048
     Dates: start: 20111216, end: 20130210

REACTIONS (15)
  - Gastric varices [Not Recovered/Not Resolved]
  - Abdominal pain upper [Unknown]
  - Pancreatic pseudocyst [Unknown]
  - Pancreatitis acute [Recovering/Resolving]
  - Fatigue [Not Recovered/Not Resolved]
  - Pancreatitis chronic [Not Recovered/Not Resolved]
  - Splenic vein thrombosis [Unknown]
  - Pancreatic necrosis [Unknown]
  - Malaise [Unknown]
  - Abdominal pain [Unknown]
  - Pancreatic pseudocyst drainage [Unknown]
  - Pancreatic stent placement [Unknown]
  - Venous thrombosis [Unknown]
  - Pyrexia [Recovered/Resolved]
  - Pseudocyst [Unknown]

NARRATIVE: CASE EVENT DATE: 20130210
